FAERS Safety Report 7551259-3 (Version None)
Quarter: 2011Q2

REPORT INFORMATION
  Report Type: 
  Country: None (occurrence: None)
  Receive Date: 20110616
  Receipt Date: 20110603
  Transmission Date: 20111010
  Serious: Yes (Other)
  Sender: FDA-Public Use
  Company Number: PHHY2011BR48925

PATIENT
  Age: 61 Year
  Sex: Female

DRUGS (1)
  1. VOLTAREN [Suspect]
     Indication: BONE PAIN
     Dosage: 1 DF, AT NIGHT
     Route: 054

REACTIONS (2)
  - MALAISE [None]
  - LABYRINTHITIS [None]
